FAERS Safety Report 7494725-1 (Version None)
Quarter: 2011Q2

REPORT INFORMATION
  Report Type: 
  Country: None (occurrence: None)
  Receive Date: 20110520
  Receipt Date: 20110513
  Transmission Date: 20111010
  Serious: Yes (Other)
  Sender: FDA-Public Use
  Company Number: US-NAPPMUNDI-USA-2011-0064818

PATIENT
  Sex: Female
  Weight: 85.714 kg

DRUGS (3)
  1. EMBEDA [Suspect]
     Indication: PRODUCT USED FOR UNKNOWN INDICATION
     Dosage: 100 MG, UNK
     Route: 048
     Dates: start: 20101122, end: 20110217
  2. BUTRANS [Suspect]
     Indication: PRODUCT USED FOR UNKNOWN INDICATION
     Dosage: 5 MCG/HR, 1/WEEK
     Route: 062
     Dates: start: 20110215, end: 20110217
  3. LORTAB [Suspect]
     Indication: PRODUCT USED FOR UNKNOWN INDICATION
     Dosage: 10 MG, Q4- 6H PRN
     Dates: start: 20101025

REACTIONS (5)
  - DIARRHOEA [None]
  - VOMITING [None]
  - LOSS OF CONSCIOUSNESS [None]
  - DRUG WITHDRAWAL SYNDROME [None]
  - NAUSEA [None]
